FAERS Safety Report 8581099-8 (Version None)
Quarter: 2012Q3

REPORT INFORMATION
  Report Type: 
  Country: None (occurrence: None)
  Receive Date: 20120809
  Receipt Date: 20120716
  Transmission Date: 20120928
  Serious: No
  Sender: FDA-Public Use
  Company Number: US-BAYER-2012-072284

PATIENT
  Age: 23 Year
  Sex: Female
  Weight: 51 kg

DRUGS (1)
  1. ALEVE (CAPLET) [Suspect]
     Indication: PRODUCT USED FOR UNKNOWN INDICATION
     Dosage: 3 DF, UNK
     Route: 048
     Dates: start: 20120716

REACTIONS (5)
  - ASTHENIA [None]
  - DIZZINESS [None]
  - SOMNOLENCE [None]
  - ABDOMINAL DISCOMFORT [None]
  - FATIGUE [None]
